FAERS Safety Report 5616219-8 (Version None)
Quarter: 2008Q1

REPORT INFORMATION
  Report Type: 
  Country: None (occurrence: None)
  Receive Date: 20080204
  Receipt Date: 20080120
  Transmission Date: 20080703
  Serious: Yes (Other)
  Sender: FDA-Public Use
  Company Number: MPS1-1000001

PATIENT
  Sex: Male

DRUGS (1)
  1. ALDURAZYME [Suspect]
     Indication: MUCOPOLYSACCHARIDOSIS I
     Dosage: INTRAVENOUS
     Route: 042
     Dates: start: 20070809, end: 20071012

REACTIONS (9)
  - CHILLS [None]
  - HYPOTENSION [None]
  - LIVEDO RETICULARIS [None]
  - NONSPECIFIC REACTION [None]
  - PERIPHERAL CIRCULATORY FAILURE [None]
  - PYREXIA [None]
  - SUPRAVENTRICULAR TACHYCARDIA [None]
  - TACHYPNOEA [None]
  - VASOCONSTRICTION [None]
